FAERS Safety Report 18327060 (Version 2)
Quarter: 2020Q4

REPORT INFORMATION
  Report Type: Other
  Country: US (occurrence: US)
  Receive Date: 20200929
  Receipt Date: 20201103
  Transmission Date: 20210113
  Serious: No
  Sender: FDA-Public Use
  Company Number: US-AMAG PHARMACEUTICALS, INC.-AMAG202002998

PATIENT
  Age: 25 Year
  Sex: Female

DRUGS (1)
  1. MAKENA [Suspect]
     Active Substance: HYDROXYPROGESTERONE CAPROATE
     Indication: PREMATURE DELIVERY
     Route: 058
     Dates: start: 20200824

REACTIONS (9)
  - Injection site paraesthesia [Recovered/Resolved]
  - Injection site bruising [Unknown]
  - Injection site erythema [Recovered/Resolved]
  - Diarrhoea [Recovered/Resolved]
  - Injection site inflammation [Recovered/Resolved]
  - Injection site swelling [Unknown]
  - Injection site pruritus [Recovered/Resolved]
  - Arthralgia [Recovered/Resolved]
  - Injection site hypoaesthesia [Recovered/Resolved]

NARRATIVE: CASE EVENT DATE: 20200824
